FAERS Safety Report 21448435 (Version 1)
Quarter: 2022Q4

REPORT INFORMATION
  Report Type: Other
  Country: None (occurrence: IN)
  Receive Date: 20221013
  Receipt Date: 20221013
  Transmission Date: 20230112
  Serious: Yes (Other)
  Sender: FDA-Public Use
  Company Number: IN-OrBion Pharmaceuticals Private Limited-2133763

PATIENT
  Age: 25 Year
  Sex: Male

DRUGS (2)
  1. OLANZAPINE [Suspect]
     Active Substance: OLANZAPINE
     Indication: Schizophrenia
     Route: 048
  2. OLANZAPINE [Suspect]
     Active Substance: OLANZAPINE
     Route: 030

REACTIONS (1)
  - Retrograde ejaculation [Recovered/Resolved]
